FAERS Safety Report 14946471 (Version 1)
Quarter: 2018Q2

REPORT INFORMATION
  Report Type: Spontaneous
  Country: US (occurrence: US)
  Receive Date: 20180529
  Receipt Date: 20180529
  Transmission Date: 20180711
  Serious: Yes (Hospitalization, Other)
  Sender: FDA-Public Use
  Company Number: US-JNJFOC-20180536415

PATIENT
  Age: 51 Year
  Sex: Female

DRUGS (1)
  1. INVOKANA [Suspect]
     Active Substance: CANAGLIFLOZIN
     Indication: TYPE 2 DIABETES MELLITUS
     Route: 048
     Dates: start: 20161026, end: 20161221

REACTIONS (5)
  - Gangrene [Unknown]
  - Toe amputation [Unknown]
  - Cellulitis [Unknown]
  - Treatment noncompliance [Unknown]
  - Osteomyelitis acute [Unknown]

NARRATIVE: CASE EVENT DATE: 20170123
